FAERS Safety Report 12352960 (Version 4)
Quarter: 2022Q1

REPORT INFORMATION
  Report Type: Report from Study
  Country: JP (occurrence: JP)
  Receive Date: 20160510
  Receipt Date: 20220203
  Transmission Date: 20220423
  Serious: Yes (Hospitalization, Other)
  Sender: FDA-Public Use
  Company Number: JP-CHUGAI-A2016016704ROCHE

PATIENT
  Age: 55 Year
  Sex: Female
  Weight: 57 kg

DRUGS (12)
  1. TRASTUZUMAB [Suspect]
     Active Substance: TRASTUZUMAB
     Indication: Breast cancer
     Dosage: 8MG/KG,1 TIMES IN 1DAY
     Route: 041
     Dates: start: 20151127, end: 20151127
  2. TRASTUZUMAB [Suspect]
     Active Substance: TRASTUZUMAB
     Dosage: 6MG/KG,1 TIMES IN 3WEEK
     Route: 041
     Dates: start: 20151225, end: 20160415
  3. PERTUZUMAB [Suspect]
     Active Substance: PERTUZUMAB
     Indication: Breast cancer
     Dosage: 840MG,1 TIMES IN 1DAY
     Route: 041
     Dates: start: 20151127, end: 20151127
  4. PERTUZUMAB [Suspect]
     Active Substance: PERTUZUMAB
     Dosage: 420MG,1 TIMES IN 3WEEK
     Route: 041
     Dates: start: 20151225, end: 20160415
  5. NAVELBINE [Suspect]
     Active Substance: VINORELBINE TARTRATE
     Indication: Breast cancer
     Dosage: 2 WEEKS ADMINISTRATION FOLLOWED BY 1 WEEK REST THE FRACTIONATION DOSE FREQUENCY IS UNCERTAIN.
     Route: 041
     Dates: start: 20151127, end: 20160422
  6. LYRICA [Concomitant]
     Active Substance: PREGABALIN
     Indication: Neuropathy peripheral
     Dosage: 75MG,2 TIMES IN 1DAY
     Route: 048
     Dates: start: 20140303
  7. CALONAL [Concomitant]
     Active Substance: ACETAMINOPHEN
     Indication: Pain
     Dosage: 600MG,3 TIMES IN 1DAY
     Route: 048
     Dates: start: 20141031
  8. MEXILETINE HYDROCHLORIDE [Concomitant]
     Active Substance: MEXILETINE HYDROCHLORIDE
     Indication: Neuropathy peripheral
     Dosage: 100MG,3 TIMES IN 1DAY
     Route: 048
     Dates: start: 20150220
  9. FUROSEMIDE [Concomitant]
     Active Substance: FUROSEMIDE
     Indication: Oedema
     Dosage: 30MG,2 TIMES IN 1DAY
     Route: 048
     Dates: start: 20140214
  10. NEXIUM [Concomitant]
     Active Substance: ESOMEPRAZOLE MAGNESIUM
     Indication: Gastritis prophylaxis
     Dosage: 20MG,1 TIMES IN 1DAY
     Route: 048
     Dates: start: 20160226
  11. TORSEMIDE [Concomitant]
     Active Substance: TORSEMIDE
     Indication: Oedema
     Dosage: 8MG,2 TIMES IN 1DAY
     Route: 048
     Dates: start: 20140509
  12. TRAMADOL [Concomitant]
     Active Substance: TRAMADOL
     Indication: Cancer pain
     Dosage: 25MG,4 TIMES IN 1DAY
     Route: 048
     Dates: start: 20160401

REACTIONS (4)
  - Abscess [Recovered/Resolved]
  - Acute sinusitis [Recovered/Resolved]
  - Arthritis [Unknown]
  - Neutropenia [Recovered/Resolved]

NARRATIVE: CASE EVENT DATE: 20160122
